FAERS Safety Report 8995566 (Version 1)
Quarter: 2013Q1

REPORT INFORMATION
  Report Type: Spontaneous
  Country: US (occurrence: US)
  Receive Date: 20130103
  Receipt Date: 20130103
  Transmission Date: 20140127
  Serious: No
  Sender: FDA-Public Use
  Company Number: US-ABBOTT-12P-163-0953341-00

PATIENT
  Sex: Female
  Weight: 49.94 kg

DRUGS (1)
  1. SYNTHROID [Suspect]
     Indication: HYPOTHYROIDISM

REACTIONS (8)
  - Product quality issue [Unknown]
  - Product quality control issue [Unknown]
  - Malaise [Unknown]
  - Palpitations [None]
  - Nausea [Unknown]
  - Dizziness [Unknown]
  - Balance disorder [Unknown]
  - Presyncope [Unknown]
